FAERS Safety Report 9600959 (Version 1)
Quarter: 2013Q4

REPORT INFORMATION
  Report Type: Spontaneous
  Country: US (occurrence: US)
  Receive Date: 20131004
  Receipt Date: 20131004
  Transmission Date: 20140711
  Serious: No
  Sender: FDA-Public Use
  Company Number: US-AMGEN-USASP2013038765

PATIENT
  Age: 58 Year
  Sex: Male
  Weight: 86.17 kg

DRUGS (6)
  1. ENBREL [Suspect]
     Indication: PRODUCT USED FOR UNKNOWN INDICATION
     Dosage: 50 MG, QWK
     Route: 058
  2. MULTIVITAMINS, PLAIN [Concomitant]
     Dosage: UNK, LIQ
  3. MINERALS [Concomitant]
     Dosage: UNK
  4. VITAMIN E                          /00110501/ [Concomitant]
     Dosage: 200 UNIT, UNK
  5. B COMPLEX                          /00212701/ [Concomitant]
     Dosage: UNK
  6. IBUPROFEN [Concomitant]
     Dosage: 200 MG, UNK

REACTIONS (1)
  - Nasopharyngitis [Unknown]
